FAERS Safety Report 24558083 (Version 1)
Quarter: 2024Q4

REPORT INFORMATION
  Report Type: Spontaneous
  Country: US (occurrence: US)
  Receive Date: 20241028
  Receipt Date: 20241028
  Transmission Date: 20250114
  Serious: No
  Sender: LUNDBECK
  Company Number: US-LUNDBECK-DKLU4005229

PATIENT

DRUGS (2)
  1. SABRIL [Suspect]
     Active Substance: VIGABATRIN
     Indication: Infantile spasms
     Dosage: 750 MILLIGRAM
  2. SABRIL [Suspect]
     Active Substance: VIGABATRIN
     Dosage: 1000 MILLIGRAM

REACTIONS (2)
  - Wrong technique in product usage process [Unknown]
  - Intentional underdose [Unknown]
